FAERS Safety Report 9515875 (Version 1)
Quarter: 2013Q3

REPORT INFORMATION
  Report Type: Spontaneous
  Country: JP (occurrence: None)
  Receive Date: 20130909
  Receipt Date: 20130909
  Transmission Date: 20140515
  Serious: Yes (Other)
  Sender: FDA-Public Use
  Company Number: 2013JP005539

PATIENT
  Age: 74 Year
  Sex: Male

DRUGS (4)
  1. GABAPENTIN ENACARBIL [Suspect]
     Indication: RESTLESS LEGS SYNDROME
     Route: 048
     Dates: start: 2013, end: 20130820
  2. WARFARIN (WARFARIN) [Concomitant]
  3. ARTIST (CARVEDILOL) TABLET [Concomitant]
  4. BI SIFROL (PRAMIPEXOLE DIHYDROCHLORIDE) [Concomitant]

REACTIONS (2)
  - Fall [None]
  - Sternal fracture [None]
